FAERS Safety Report 4347754-0 (Version None)
Quarter: 2004Q2

REPORT INFORMATION
  Report Type: 
  Country: None (occurrence: None)
  Receive Date: 20040426
  Receipt Date: 20040413
  Transmission Date: 20050107
  Serious: Yes (Hospitalization)
  Sender: FDA-Public Use
  Company Number: 035

PATIENT
  Age: 23 Year
  Sex: Male

DRUGS (2)
  1. AMPICILLIN [Suspect]
     Indication: TOOTH DISORDER
     Dosage: 500 MG QD ORALLY,  5-7 DAYS
     Route: 048
  2. AMPICILLIN [Suspect]
     Indication: UPPER RESPIRATORY TRACT INFECTION
     Dosage: 500 MG QD ORALLY,  5-7 DAYS
     Route: 048

REACTIONS (1)
  - CHOLESTASIS [None]
